FAERS Safety Report 20244036 (Version 1)
Quarter: 2021Q4

REPORT INFORMATION
  Report Type: Spontaneous
  Country: US (occurrence: US)
  Receive Date: 20211228
  Receipt Date: 20211228
  Transmission Date: 20220303
  Serious: Yes (Other)
  Sender: FDA-Public Use
  Company Number: US-COOPERSURGICAL, INC.-US-2021CPS002246

PATIENT
  Age: 32 Year
  Sex: Female
  Weight: 69.297 kg

DRUGS (1)
  1. PARAGARD T 380A [Suspect]
     Active Substance: COPPER
     Indication: Contraception
     Dosage: UNK
     Route: 015
     Dates: start: 20210408, end: 20210630

REACTIONS (7)
  - Pregnancy with contraceptive device [Unknown]
  - Abortion spontaneous [Unknown]
  - Ectopic pregnancy [Unknown]
  - Muscle spasms [Unknown]
  - Pain [Unknown]
  - Vaginal discharge [Unknown]
  - Drug ineffective [Unknown]

NARRATIVE: CASE EVENT DATE: 20210601
